FAERS Safety Report 8470583-3 (Version None)
Quarter: 2012Q2

REPORT INFORMATION
  Report Type: 
  Country: None (occurrence: None)
  Receive Date: 20120323
  Receipt Date: 20111117
  Transmission Date: 20120825
  Serious: Yes (Hospitalization)
  Sender: FDA-Public Use
  Company Number: 163-21880-11101384

PATIENT
  Age: 73 Year
  Sex: Female

DRUGS (5)
  1. JANUVIA [Concomitant]
  2. DIOVAN [Concomitant]
  3. LEVOTHYROXINE SODIUM [Concomitant]
  4. METFORMIN HCL [Concomitant]
  5. REVLIMID [Suspect]
     Indication: MULTIPLE MYELOMA
     Dosage: 15 MG, DAILY FOR 21 DAYS, PO
     Route: 048
     Dates: start: 20100423

REACTIONS (3)
  - INFECTION [None]
  - ANAEMIA [None]
  - FULL BLOOD COUNT DECREASED [None]
